FAERS Safety Report 4496622-2 (Version None)
Quarter: 2004Q3

REPORT INFORMATION
  Report Type: 
  Country: None (occurrence: None)
  Receive Date: 20040923
  Receipt Date: 20040528
  Transmission Date: 20050211
  Serious: No
  Sender: FDA-Public Use
  Company Number: WAES 0406USA00039

PATIENT
  Age: 53 Year
  Sex: Male

DRUGS (5)
  1. INVANZ [Suspect]
     Indication: PNEUMONIA
     Dates: start: 20040424, end: 20040518
  2. INVANZ [Concomitant]
     Indication: PNEUMONIA
     Dosage: IV
     Route: 042
     Dates: start: 20040518
  3. VIBRAMYCIN [Concomitant]
  4. ZITHROMAX [Concomitant]
  5. ZOSYN [Concomitant]

REACTIONS (2)
  - CHAPPED LIPS [None]
  - DYSGEUSIA [None]
